FAERS Safety Report 6181943-8 (Version None)
Quarter: 2009Q2

REPORT INFORMATION
  Report Type: 
  Country: None (occurrence: None)
  Receive Date: 20090505
  Receipt Date: 20090421
  Transmission Date: 20091009
  Serious: Yes (Hospitalization)
  Sender: FDA-Public Use
  Company Number: RENA-1000171

PATIENT
  Age: 80 Year
  Sex: Female

DRUGS (2)
  1. RENVELA [Suspect]
     Indication: HYPERPHOSPHATAEMIA
     Dosage: 8.0 G, QD, ORAL, ORAL
     Route: 048
     Dates: start: 20080613, end: 20080620
  2. RENAGEL [Concomitant]

REACTIONS (1)
  - GASTROENTERITIS [None]
